FAERS Safety Report 6376792-1 (Version None)
Quarter: 2009Q3

REPORT INFORMATION
  Report Type: 
  Country: None (occurrence: None)
  Receive Date: 20090925
  Receipt Date: 20090922
  Transmission Date: 20100115
  Serious: Yes (Death, Life-Threatening)
  Sender: FDA-Public Use
  Company Number: AT-AVENTIS-200920669GDDC

PATIENT
  Age: 50 Year
  Sex: Female

DRUGS (6)
  1. DOCETAXEL [Suspect]
     Indication: BREAST CANCER
     Route: 042
     Dates: start: 20021115, end: 20021115
  2. DOXORUBICIN HCL [Suspect]
     Indication: BREAST CANCER
     Dosage: DOSE: UNK
  3. CYCLOPHOSPHAMIDE [Suspect]
     Indication: BREAST CANCER
     Dosage: DOSE: UNK
  4. ZOFRAN [Concomitant]
     Route: 042
     Dates: start: 20021115, end: 20021115
  5. FORTECORTIN                        /00016001/ [Concomitant]
     Dates: start: 20021116, end: 20021116
  6. UNKNOWN DRUG [Concomitant]

REACTIONS (1)
  - ACUTE LEUKAEMIA [None]
